FAERS Safety Report 22921711 (Version 2)
Quarter: 2024Q3

REPORT INFORMATION
  Report Type: Spontaneous
  Country: US (occurrence: US)
  Receive Date: 20230908
  Receipt Date: 20240902
  Transmission Date: 20241016
  Serious: No
  Sender: ASTELLAS
  Company Number: US-ASTELLAS-2023US025801

PATIENT
  Sex: Male

DRUGS (1)
  1. XTANDI [Suspect]
     Active Substance: ENZALUTAMIDE
     Indication: Product used for unknown indication
     Dosage: 40 MG, ONCE DAILY
     Route: 065

REACTIONS (2)
  - Fatigue [Unknown]
  - Underdose [Unknown]
